FAERS Safety Report 8219013-7 (Version None)
Quarter: 2012Q1

REPORT INFORMATION
  Report Type: 
  Country: None (occurrence: None)
  Receive Date: 20120319
  Receipt Date: 20120314
  Transmission Date: 20120608
  Serious: Yes (Hospitalization)
  Sender: FDA-Public Use
  Company Number: US-B.I. PHARMACEUTICALS,INC./RIDGEFIELD-2012-BP-04911BP

PATIENT
  Sex: Male

DRUGS (1)
  1. AGGRENOX [Suspect]
     Indication: CEREBROVASCULAR ACCIDENT PROPHYLAXIS
     Route: 048
     Dates: start: 20080101

REACTIONS (4)
  - TRANSIENT ISCHAEMIC ATTACK [None]
  - VISUAL ACUITY REDUCED [None]
  - HERNIA [None]
  - SINUSITIS [None]
